FAERS Safety Report 4783564-8 (Version None)
Quarter: 2005Q3

REPORT INFORMATION
  Report Type: 
  Country: None (occurrence: None)
  Receive Date: 20050929
  Receipt Date: 20050922
  Transmission Date: 20060218
  Serious: Yes (Other)
  Sender: FDA-Public Use
  Company Number: PHNR2005AU01459

PATIENT
  Age: 46 Year
  Sex: Male

DRUGS (10)
  1. CELLCEPT [Concomitant]
  2. PREDNISOLONE [Concomitant]
  3. SOMAC [Concomitant]
  4. ASPIRIN [Concomitant]
  5. CALTRATE [Concomitant]
  6. RAMIPRIL [Concomitant]
  7. ZANIDIP [Concomitant]
  8. PENICILLIN [Concomitant]
  9. FLUVOXAMINE [Suspect]
     Indication: DEPRESSION
  10. NEORAL [Suspect]
     Indication: TRANSPLANT

REACTIONS (3)
  - DEPRESSION [None]
  - DRUG INTERACTION [None]
  - IMMUNOSUPPRESSANT DRUG LEVEL INCREASED [None]
